FAERS Safety Report 6421730-6 (Version None)
Quarter: 2009Q4

REPORT INFORMATION
  Report Type: 
  Country: None (occurrence: None)
  Receive Date: 20091030
  Receipt Date: 20091023
  Transmission Date: 20100525
  Serious: Yes (Hospitalization)
  Sender: FDA-Public Use
  Company Number: BR-ELI_LILLY_AND_COMPANY-BR200904000392

PATIENT
  Sex: Female
  Weight: 57 kg

DRUGS (6)
  1. HUMALOG [Suspect]
     Indication: TYPE 1 DIABETES MELLITUS
     Dosage: 3 IU, DAILY (1/D)
     Route: 058
     Dates: start: 19990101
  2. HUMALOG [Suspect]
     Dosage: UNK, UNKNOWN
     Route: 065
  3. HIXIZINE [Concomitant]
     Indication: HYPERSENSITIVITY
     Dosage: UNK, DAILY (1/D)
     Route: 065
  4. ATORVASTATINA [Concomitant]
     Indication: BLOOD CHOLESTEROL
     Dosage: 20 MG, DAILY (1/D)
     Route: 065
  5. OMEPRAZOLE [Concomitant]
     Dosage: 20 MG, EACH MORNING
     Route: 065
  6. MOTILIUM [Concomitant]
     Dosage: UNK, EACH EVENING
     Route: 065

REACTIONS (5)
  - BLOOD POTASSIUM DECREASED [None]
  - DIABETES MELLITUS INADEQUATE CONTROL [None]
  - DIABETIC KETOACIDOSIS [None]
  - DRUG INEFFECTIVE [None]
  - URINARY TRACT INFECTION [None]
